FAERS Safety Report 5927070-3 (Version None)
Quarter: 2008Q4

REPORT INFORMATION
  Report Type: 
  Country: None (occurrence: None)
  Receive Date: 20081022
  Receipt Date: 20081020
  Transmission Date: 20090506
  Serious: Yes (Hospitalization)
  Sender: FDA-Public Use
  Company Number: US-B.I. PHARMACEUTICALS,INC./RIDGEFIELD-2008-BP-15103BP

PATIENT
  Age: 46 Year
  Sex: Male

DRUGS (4)
  1. SPIRIVA [Suspect]
     Indication: CHRONIC OBSTRUCTIVE PULMONARY DISEASE
     Dosage: 36MCG
     Route: 055
     Dates: start: 20080601
  2. ALBUTEROL [Concomitant]
     Indication: ASTHMA
  3. SEROQUEL [Concomitant]
     Indication: PSYCHOMOTOR HYPERACTIVITY
  4. DEPAKOTE [Concomitant]
     Indication: SLEEP DISORDER

REACTIONS (2)
  - DRUG INEFFECTIVE [None]
  - DYSPNOEA [None]
